FAERS Safety Report 25834330 (Version 1)
Quarter: 2025Q3

REPORT INFORMATION
  Report Type: Spontaneous
  Country: BR (occurrence: BR)
  Receive Date: 20250923
  Receipt Date: 20250923
  Transmission Date: 20251021
  Serious: Yes (Other)
  Sender: Phathom Pharmaceuticals
  Company Number: BR-PHATHOM PHARMACEUTICALS INC.-2025PHT02613

PATIENT
  Sex: Male

DRUGS (1)
  1. VONOPRAZAN FUMARATE [Suspect]
     Active Substance: VONOPRAZAN FUMARATE
     Indication: Product used for unknown indication

REACTIONS (7)
  - Laryngeal oedema [Unknown]
  - Anaphylactic shock [Unknown]
  - Peripheral swelling [Unknown]
  - Erythema [Unknown]
  - Vomiting [Unknown]
  - Pharyngeal swelling [Recovering/Resolving]
  - Diarrhoea [Unknown]
